FAERS Safety Report 7217285-9 (Version None)
Quarter: 2010Q4

REPORT INFORMATION
  Report Type: 
  Country: None (occurrence: None)
  Receive Date: 20101227
  Receipt Date: 20101215
  Transmission Date: 20110411
  Serious: Yes (Death, Other)
  Sender: FDA-Public Use
  Company Number: 056-21880-1007069

PATIENT

DRUGS (4)
  1. REVLIMID [Suspect]
     Indication: MYELODYSPLASTIC SYNDROME
     Dosage: 10 MG, PO
     Route: 048
  2. DAUNORUBICIN HCL [Concomitant]
  3. CYTARABINE [Concomitant]
  4. G-CSF (GRANULOCYTE COLONY STIMULATING FACTOR) [Concomitant]

REACTIONS (5)
  - BLOOD BILIRUBIN INCREASED [None]
  - FUNGAL INFECTION [None]
  - MULTI-ORGAN FAILURE [None]
  - MYOCARDIAL INFARCTION [None]
  - SEPSIS [None]
